FAERS Safety Report 5589328-X (Version None)
Quarter: 2008Q1

REPORT INFORMATION
  Report Type: 
  Country: None (occurrence: None)
  Receive Date: 20080114
  Receipt Date: 20080108
  Transmission Date: 20080703
  Serious: No
  Sender: FDA-Public Use
  Company Number: US-AVENTIS-200718829US

PATIENT
  Age: 55 Year
  Sex: Male

DRUGS (12)
  1. LANTUS [Suspect]
     Dates: start: 20060101
  2. AMARYL [Concomitant]
     Dosage: DOSE: UNK
  3. ACTOS [Concomitant]
     Dosage: DOSE: UNK
  4. LORTAB [Concomitant]
     Dosage: DOSE: UNK
  5. CLONIDINE [Concomitant]
     Dosage: DOSE: UNK
  6. LEXAPRO [Concomitant]
     Dosage: DOSE: UNK
  7. DEMADEX [Concomitant]
     Dosage: DOSE: UNK
  8. CADUET [Concomitant]
     Dosage: DOSE: UNK
  9. COREG [Concomitant]
     Dosage: DOSE: UNK
  10. XANAX [Concomitant]
     Dosage: DOSE: UNK
  11. REGLAN                             /00041901/ [Concomitant]
     Dosage: DOSE: UNK
  12. MOBIC [Concomitant]
     Dosage: DOSE: UNK

REACTIONS (6)
  - BLOOD GLUCOSE DECREASED [None]
  - BLOOD GLUCOSE INCREASED [None]
  - DRY MOUTH [None]
  - POLYDIPSIA [None]
  - VISION BLURRED [None]
  - VISUAL DISTURBANCE [None]
